FAERS Safety Report 4668760-2 (Version None)
Quarter: 2005Q2

REPORT INFORMATION
  Report Type: 
  Country: None (occurrence: None)
  Receive Date: 20050519
  Receipt Date: 20050510
  Transmission Date: 20051028
  Serious: Yes (Hospitalization)
  Sender: FDA-Public Use
  Company Number: 2005-01603

PATIENT
  Age: 40 Year
  Sex: Female

DRUGS (1)
  1. TRELSTAR DEPOT [Suspect]
     Indication: UTERINE LEIOMYOMA

REACTIONS (5)
  - ARTHRITIS [None]
  - CHILLS [None]
  - OFF LABEL USE [None]
  - PYREXIA [None]
  - SKIN REACTION [None]
